FAERS Safety Report 18062540 (Version 2)
Quarter: 2020Q3

REPORT INFORMATION
  Report Type: Report from Study
  Country: US (occurrence: US)
  Receive Date: 20200723
  Receipt Date: 20200730
  Transmission Date: 20201103
  Serious: Yes (Hospitalization)
  Sender: FDA-Public Use
  Company Number: US-ACTELION-A-NJ2020-207306

PATIENT
  Sex: Male
  Weight: 148.75 kg

DRUGS (19)
  1. ELIQUIS [Concomitant]
     Active Substance: APIXABAN
  2. REMERON [Concomitant]
     Active Substance: MIRTAZAPINE
  3. NIFEDIPINE. [Concomitant]
     Active Substance: NIFEDIPINE
  4. TRADJENTA [Concomitant]
     Active Substance: LINAGLIPTIN
  5. TADALAFIL. [Concomitant]
     Active Substance: TADALAFIL
  6. IMBRUVICA [Concomitant]
     Active Substance: IBRUTINIB
  7. LOXAPINE. [Concomitant]
     Active Substance: LOXAPINE
  8. LIPITOR [Concomitant]
     Active Substance: ATORVASTATIN CALCIUM
  9. DEPAKOTE [Concomitant]
     Active Substance: DIVALPROEX SODIUM
  10. HYDRALAZINE [Concomitant]
     Active Substance: HYDRALAZINE HYDROCHLORIDE
  11. LANTUS [Concomitant]
     Active Substance: INSULIN GLARGINE
  12. LEXAPRO [Concomitant]
     Active Substance: ESCITALOPRAM OXALATE
  13. OPSUMIT [Suspect]
     Active Substance: MACITENTAN
     Indication: PULMONARY HYPERTENSION
     Dosage: 10 MG, QD
     Route: 048
     Dates: start: 20191211
  14. LEVITRA [Concomitant]
     Active Substance: VARDENAFIL HYDROCHLORIDE
  15. LUNESTA [Concomitant]
     Active Substance: ESZOPICLONE
  16. COREG [Concomitant]
     Active Substance: CARVEDILOL
  17. VITAMIN D3 [Concomitant]
     Active Substance: CHOLECALCIFEROL
  18. POTASSIUM [Concomitant]
     Active Substance: POTASSIUM
  19. TRAMADOL. [Concomitant]
     Active Substance: TRAMADOL

REACTIONS (6)
  - Duodenal ulcer [Unknown]
  - Abdominal pain upper [Unknown]
  - Vomiting [Unknown]
  - Diarrhoea [Unknown]
  - Pyrexia [Unknown]
  - Nausea [Unknown]
